FAERS Safety Report 6919524-8 (Version None)
Quarter: 2010Q3

REPORT INFORMATION
  Report Type: 
  Country: None (occurrence: None)
  Receive Date: 20100810
  Receipt Date: 20100810
  Transmission Date: 20110219
  Serious: Yes (Hospitalization)
  Sender: FDA-Public Use
  Company Number: None

PATIENT

DRUGS (2)
  1. CARBOPLATIN [Suspect]
     Dosage: 803 MG
     Dates: end: 20100716
  2. ETOPOSIDE [Suspect]
     Dosage: 609 MG
     Dates: end: 20100716

REACTIONS (4)
  - COUGH [None]
  - HAEMOGLOBIN DECREASED [None]
  - PNEUMONIA [None]
  - PYREXIA [None]
